FAERS Safety Report 14959022 (Version 1)
Quarter: 2018Q2

REPORT INFORMATION
  Report Type: Report from Study
  Country: JP (occurrence: JP)
  Receive Date: 20180531
  Receipt Date: 20180531
  Transmission Date: 20180711
  Serious: Yes (Other)
  Sender: FDA-Public Use
  Company Number: JP-ASTELLAS-2016JP014648

PATIENT
  Age: 40 Year
  Sex: Female
  Weight: 41 kg

DRUGS (40)
  1. PREDONINE [Suspect]
     Active Substance: PREDNISOLONE
     Route: 048
     Dates: start: 20150120
  2. SALIGREN [Concomitant]
     Route: 048
     Dates: start: 20130109
  3. POLYFUL [Concomitant]
     Active Substance: CALCIUM POLYCARBOPHIL
     Indication: DIARRHOEA
     Route: 048
     Dates: start: 20120618
  4. PREDONINE [Suspect]
     Active Substance: PREDNISOLONE
     Route: 048
     Dates: start: 20070807, end: 20070907
  5. PREDONINE [Suspect]
     Active Substance: PREDNISOLONE
     Route: 048
     Dates: start: 20100219, end: 20100330
  6. PREDONINE [Suspect]
     Active Substance: PREDNISOLONE
     Route: 048
     Dates: start: 20130109, end: 20130207
  7. GASCON [Concomitant]
     Active Substance: DIMETHICONE
     Indication: DIARRHOEA
     Route: 048
     Dates: start: 20150818, end: 20161117
  8. FELBINAC [Concomitant]
     Active Substance: FELBINAC
     Indication: ARTHRALGIA
  9. POLYFUL [Concomitant]
     Active Substance: CALCIUM POLYCARBOPHIL
     Indication: PROPHYLAXIS
     Dosage: UNK UNK, AS NEEDED
     Route: 048
     Dates: start: 20120618
  10. PREDONINE [Suspect]
     Active Substance: PREDNISOLONE
     Route: 048
     Dates: start: 20080714, end: 20081106
  11. PREDONINE [Suspect]
     Active Substance: PREDNISOLONE
     Route: 048
     Dates: start: 20100521, end: 20100613
  12. PREDONINE [Suspect]
     Active Substance: PREDNISOLONE
     Route: 048
     Dates: start: 20101214, end: 20110520
  13. PREDONINE [Suspect]
     Active Substance: PREDNISOLONE
     Route: 048
     Dates: start: 20130208, end: 20140422
  14. PREDONINE [Suspect]
     Active Substance: PREDNISOLONE
     Route: 048
     Dates: start: 20141016, end: 20141215
  15. TACROLIMUS. [Suspect]
     Active Substance: TACROLIMUS
     Indication: LUPUS NEPHRITIS
     Route: 048
     Dates: start: 20070710, end: 20080807
  16. PREDONINE [Suspect]
     Active Substance: PREDNISOLONE
     Route: 048
     Dates: start: 20071006, end: 20071109
  17. PREDONINE [Suspect]
     Active Substance: PREDNISOLONE
     Route: 048
     Dates: start: 20121210, end: 20130108
  18. SALIGREN [Concomitant]
     Indication: DRY MOUTH
     Route: 048
     Dates: start: 20120618, end: 20130108
  19. HYPEN                              /00613801/ [Concomitant]
     Active Substance: ETODOLAC
     Indication: ARTHRALGIA
     Route: 048
     Dates: start: 20160426
  20. PREDONINE [Suspect]
     Active Substance: PREDNISOLONE
     Route: 048
     Dates: start: 20140423, end: 20141015
  21. GASCON [Concomitant]
     Active Substance: DIMETHICONE
     Indication: PROPHYLAXIS
  22. HYPEN                              /00613801/ [Concomitant]
     Active Substance: ETODOLAC
     Indication: ARTHRALGIA
  23. PREDONINE [Suspect]
     Active Substance: PREDNISOLONE
     Indication: LUPUS NEPHRITIS
     Route: 048
     Dates: end: 20070806
  24. PREDONINE [Suspect]
     Active Substance: PREDNISOLONE
     Route: 048
     Dates: start: 20100112, end: 20100218
  25. PREDONINE [Suspect]
     Active Substance: PREDNISOLONE
     Route: 048
     Dates: start: 20141216, end: 20150119
  26. PREDOHAN [Suspect]
     Active Substance: PREDNISOLONE
     Indication: ARTHRITIS
  27. ZOLPIDEM TARTRATE. [Concomitant]
     Active Substance: ZOLPIDEM TARTRATE
     Indication: PROPHYLAXIS
     Route: 048
     Dates: start: 20141113, end: 20170220
  28. POLYFUL [Concomitant]
     Active Substance: CALCIUM POLYCARBOPHIL
     Route: 048
     Dates: start: 20140619, end: 20151117
  29. TACROLIMUS. [Suspect]
     Active Substance: TACROLIMUS
     Route: 048
     Dates: start: 20080808, end: 20121209
  30. PREDONINE [Suspect]
     Active Substance: PREDNISOLONE
     Route: 048
     Dates: start: 20070908, end: 20071005
  31. PREDONINE [Suspect]
     Active Substance: PREDNISOLONE
     Route: 048
     Dates: start: 20071110, end: 20080110
  32. PREDONINE [Suspect]
     Active Substance: PREDNISOLONE
     Route: 048
     Dates: start: 20080111, end: 20080429
  33. PREDONINE [Suspect]
     Active Substance: PREDNISOLONE
     Route: 048
     Dates: start: 20080430, end: 20080713
  34. PREDONINE [Suspect]
     Active Substance: PREDNISOLONE
     Route: 048
     Dates: start: 20081107, end: 20100111
  35. PREDONINE [Suspect]
     Active Substance: PREDNISOLONE
     Route: 048
     Dates: start: 20100614, end: 20101213
  36. PREDOHAN [Suspect]
     Active Substance: PREDNISOLONE
     Indication: ARTHRITIS
     Route: 048
     Dates: start: 20080912, end: 20081106
  37. FELBINAC [Concomitant]
     Active Substance: FELBINAC
     Indication: ARTHRALGIA
     Dosage: UNK UNK, UNKNOWN FREQ.
     Route: 061
     Dates: start: 20150819
  38. TACROLIMUS. [Suspect]
     Active Substance: TACROLIMUS
     Route: 048
     Dates: start: 20121210
  39. PREDONINE [Suspect]
     Active Substance: PREDNISOLONE
     Route: 048
     Dates: start: 20100331, end: 20100520
  40. PREDONINE [Suspect]
     Active Substance: PREDNISOLONE
     Route: 048
     Dates: start: 20110521, end: 20121209

REACTIONS (3)
  - Arthralgia [Recovering/Resolving]
  - Haemorrhoids [Recovered/Resolved]
  - Osteonecrosis [Unknown]

NARRATIVE: CASE EVENT DATE: 20160426
